FAERS Safety Report 13876942 (Version 3)
Quarter: 2017Q3

REPORT INFORMATION
  Report Type: Report from Study
  Country: CZ (occurrence: CZ)
  Receive Date: 20170817
  Receipt Date: 20170928
  Transmission Date: 20171127
  Serious: Yes (Death, Hospitalization)
  Sender: FDA-Public Use
  Company Number: CZ-ASTELLAS-2017US032210

PATIENT
  Age: 74 Year
  Sex: Male

DRUGS (22)
  1. DOCETAXEL. [Suspect]
     Active Substance: DOCETAXEL
     Indication: PROSTATE CANCER
     Dosage: 75 MG/M2, EVERY THREE WEEKS
     Route: 042
     Dates: start: 20170214, end: 20170509
  2. STILNOX [Concomitant]
     Active Substance: ZOLPIDEM TARTRATE
     Indication: INSOMNIA
     Dosage: 5 MG, TOTAL DAILY DOSE
     Route: 048
     Dates: start: 2007
  3. HELICID                            /00661201/ [Concomitant]
     Indication: PROPHYLAXIS
  4. XGEVA [Concomitant]
     Active Substance: DENOSUMAB
     Indication: PROPHYLAXIS
  5. ENZALUTAMIDE [Suspect]
     Active Substance: ENZALUTAMIDE
     Indication: PROSTATE CANCER
     Route: 048
     Dates: start: 20150401, end: 20170213
  6. XGEVA [Concomitant]
     Active Substance: DENOSUMAB
     Indication: PRODUCT USED FOR UNKNOWN INDICATION
     Dosage: 120 MG, TOTAL DAILY DOSE
     Route: 058
     Dates: start: 20150307
  7. CALCITRATE [Concomitant]
     Active Substance: CALCIUM CITRATE
     Indication: OSTEOPOROSIS PROPHYLAXIS
     Dosage: 1 DF, TOTAL DAILY DOSE
     Route: 048
     Dates: start: 2013
  8. URIZIA [Concomitant]
     Indication: MICTURITION DISORDER
  9. DEXONA                             /00016001/ [Concomitant]
     Active Substance: DEXAMETHASONE
     Indication: PROPHYLAXIS
     Dosage: 16 MG, UNK
     Route: 042
     Dates: start: 20170214
  10. ALGIFEN                            /00372304/ [Concomitant]
     Indication: PAIN
     Route: 065
  11. PREDNISONE. [Suspect]
     Active Substance: PREDNISONE
     Indication: PROSTATE CANCER
     Route: 048
     Dates: start: 20170214, end: 20170531
  12. DOXYBENE [Concomitant]
     Indication: LYME DISEASE
     Dosage: 100 MG, TOTAL DAILY DOSE
     Route: 048
     Dates: start: 20160815
  13. GRANISETRON [Concomitant]
     Active Substance: GRANISETRON
     Indication: PROPHYLAXIS
     Dosage: 2 MG, EVERY 3 WEEKS (ON THE DAY OF CHEMO AND 3 DAYS AFTER)
     Route: 048
     Dates: start: 20170214
  14. DITHIADEN [Concomitant]
     Active Substance: BISULEPIN
     Indication: PROPHYLAXIS
     Route: 042
     Dates: start: 20170214
  15. DIHYDROCODEINE [Concomitant]
     Active Substance: DIHYDROCODEINE
     Indication: BACK PAIN
     Dosage: 180 MG, TOTAL DAILY DOSE
     Route: 048
     Dates: start: 20170502
  16. BLINDED ENZALUTAMIDE [Suspect]
     Active Substance: ENZALUTAMIDE
     Indication: PROSTATE CANCER
     Dosage: UNK, ONCE DAILY
     Route: 048
     Dates: start: 20170214, end: 20170801
  17. FLIXOTIDE [Concomitant]
     Active Substance: FLUTICASONE PROPIONATE
     Indication: ASTHMA
     Dosage: 1 INHALATION, TOTAL DAILY DOSE
     Route: 055
     Dates: start: 2013
  18. URIZIA [Concomitant]
     Indication: URINARY TRACT DISORDER
     Dosage: 1 DF, TOTAL DAILY DOSE
     Route: 048
     Dates: start: 2014
  19. HELICID                            /00661201/ [Concomitant]
     Indication: PROPHYLAXIS
     Route: 048
     Dates: start: 20170214
  20. DIHYDROCODEINE [Concomitant]
     Active Substance: DIHYDROCODEINE
     Route: 065
  21. KINITO [Concomitant]
     Indication: PRODUCT USED FOR UNKNOWN INDICATION
     Dosage: UNK UNK, THRICE DAILY
     Route: 065
  22. TORECAN [Concomitant]
     Active Substance: THIETHYLPERAZINE MALATE
     Indication: VOMITING
     Dosage: UNK UNK, THRICE DAILY
     Route: 065

REACTIONS (1)
  - General physical health deterioration [Fatal]

NARRATIVE: CASE EVENT DATE: 20170808
